FAERS Safety Report 18888682 (Version 1)
Quarter: 2021Q1

REPORT INFORMATION
  Report Type: Spontaneous
  Country: TR (occurrence: TR)
  Receive Date: 20210212
  Receipt Date: 20210212
  Transmission Date: 20210420
  Serious: Yes (Other)
  Sender: FDA-Public Use
  Company Number: TR-PFIZER INC-2021149145

PATIENT

DRUGS (3)
  1. XELJANZ [Suspect]
     Active Substance: TOFACITINIB CITRATE
  2. LEFLUNOMID [Concomitant]
     Active Substance: LEFLUNOMIDE
  3. METHYLPREDNISOLONE ACETATE. [Concomitant]
     Active Substance: METHYLPREDNISOLONE ACETATE

REACTIONS (2)
  - Pulmonary embolism [Unknown]
  - Peripheral artery thrombosis [Unknown]
